FAERS Safety Report 5270395-8 (Version None)
Quarter: 2007Q1

REPORT INFORMATION
  Report Type: 
  Country: None (occurrence: None)
  Receive Date: 20070320
  Receipt Date: 20070309
  Transmission Date: 20070707
  Serious: Yes (Other)
  Sender: FDA-Public Use
  Company Number: JP-PFIZER INC-2007016944

PATIENT
  Sex: Female

DRUGS (6)
  1. LIPITOR [Suspect]
     Indication: HYPERLIPIDAEMIA
     Route: 048
  2. SOLANAX [Concomitant]
     Dosage: DAILY DOSE:4MG
     Route: 048
  3. LITHIUM CARBONATE [Concomitant]
     Dosage: DAILY DOSE:100MG
     Route: 048
     Dates: start: 20020515, end: 20051122
  4. LANDEL [Concomitant]
     Dosage: DAILY DOSE:20MG
     Route: 048
  5. TENORMIN [Concomitant]
     Dosage: DAILY DOSE:12.5MG
     Route: 048
  6. ASPIRIN [Concomitant]
     Dosage: DAILY DOSE:100MG
     Route: 048

REACTIONS (1)
  - EPILEPSY [None]
